FAERS Safety Report 13378251 (Version 2)
Quarter: 2017Q2

REPORT INFORMATION
  Report Type: Spontaneous
  Country: US (occurrence: US)
  Receive Date: 20170328
  Receipt Date: 20170406
  Transmission Date: 20170830
  Serious: Yes (Hospitalization)
  Sender: FDA-Public Use
  Company Number: US-UNITED THERAPEUTICS-UNT-2017-003959

PATIENT
  Age: 74 Year
  Sex: Female
  Weight: 64.4 kg

DRUGS (3)
  1. REMODULIN [Suspect]
     Active Substance: TREPROSTINIL
     Indication: PULMONARY HYPERTENSION
     Dosage: 0.110 ?G/KG, CONTINUING
     Route: 058
     Dates: start: 20151215
  2. REMODULIN [Suspect]
     Active Substance: TREPROSTINIL
     Dosage: 0.065 ?G/KG, CONTINUING
     Route: 058
     Dates: start: 20160114
  3. REMODULIN [Suspect]
     Active Substance: TREPROSTINIL
     Dosage: 0.104 ?G/KG, CONTINUING
     Route: 058

REACTIONS (2)
  - Hypotension [Unknown]
  - Renal disorder [Unknown]

NARRATIVE: CASE EVENT DATE: 20170315
